FAERS Safety Report 4731470-7 (Version None)
Quarter: 2005Q3

REPORT INFORMATION
  Report Type: 
  Country: None (occurrence: None)
  Receive Date: 20050801
  Receipt Date: 20050801
  Transmission Date: 20060218
  Serious: Yes (Hospitalization)
  Sender: FDA-Public Use
  Company Number: None

PATIENT
  Age: 94 Year
  Sex: Female
  Weight: 71 kg

DRUGS (1)
  1. DIGITEK    125 MICROGRAMS [Suspect]
     Indication: ATRIAL FIBRILLATION
     Dosage: 125 MICROG   DAILY  ORAL
     Route: 048
     Dates: start: 20040101, end: 20041005

REACTIONS (1)
  - RENAL FAILURE ACUTE [None]
